FAERS Safety Report 13839024 (Version 1)
Quarter: 2017Q3

REPORT INFORMATION
  Report Type: Spontaneous
  Country: US (occurrence: US)
  Receive Date: 20170805
  Receipt Date: 20170805
  Transmission Date: 20171127
  Serious: Yes (Life-Threatening)
  Sender: FDA-Public Use
  Company Number: None

PATIENT
  Age: 82 Year
  Sex: Male
  Weight: 78.75 kg

DRUGS (8)
  1. RED YEAST RICE [Concomitant]
     Active Substance: DIETARY SUPPLEMENT
  2. LOSARTAN. 25 MG [Suspect]
     Active Substance: LOSARTAN
     Indication: BLOOD PRESSURE MEASUREMENT
     Dosage: 1 TABLET(S); 1/2 TABLET 2X/DAY?
     Route: 048
     Dates: start: 20170726, end: 20170805
  3. VITAMIN D [Concomitant]
     Active Substance: CHOLECALCIFEROL
  4. PROBIOTICS [Concomitant]
     Active Substance: PROBIOTICS NOS
  5. FISH OIL [Concomitant]
     Active Substance: FISH OIL
  6. VITAMIN E [Concomitant]
     Active Substance: .ALPHA.-TOCOPHEROL
  7. COQ10 [Concomitant]
     Active Substance: UBIDECARENONE
  8. VITAMIN B12 [Concomitant]
     Active Substance: CYANOCOBALAMIN

REACTIONS (2)
  - Orthostatic hypotension [None]
  - Product quality issue [None]

NARRATIVE: CASE EVENT DATE: 20170804
